FAERS Safety Report 23960366 (Version 6)
Quarter: 2024Q4

REPORT INFORMATION
  Report Type: Report from Study
  Country: DE (occurrence: DE)
  Receive Date: 20240611
  Receipt Date: 20241030
  Transmission Date: 20250115
  Serious: No
  Sender: ROCHE
  Company Number: None

PATIENT
  Age: 31 Year
  Sex: Female
  Weight: 85 kg

DRUGS (16)
  1. OCREVUS [Suspect]
     Active Substance: OCRELIZUMAB
     Indication: Relapsing multiple sclerosis
     Dosage: START DATE 04-MAY-2022
     Route: 042
     Dates: end: 20220518
  2. OCREVUS [Suspect]
     Active Substance: OCRELIZUMAB
     Route: 042
     Dates: start: 20221117
  3. FINGOLIMOD [Suspect]
     Active Substance: FINGOLIMOD
     Indication: Relapsing multiple sclerosis
     Dosage: MOST RECENT DOSE RECEIVED ON 27-FEB-2022
     Route: 048
     Dates: start: 20200824
  4. DIENOGEST\ETHINYL ESTRADIOL [Concomitant]
     Active Substance: DIENOGEST\ETHINYL ESTRADIOL
     Route: 048
     Dates: start: 2010
  5. TICK-BORNE ENCEPHALITIS VACCINE [Concomitant]
     Active Substance: TICK-BORNE ENCEPHALITIS VACCINE
     Indication: Prophylaxis
     Route: 030
     Dates: start: 20220321, end: 20220321
  6. PFIZER-BIONTECH COVID-19 VACCINE [Concomitant]
     Active Substance: TOZINAMERAN
     Indication: COVID-19 immunisation
     Route: 030
     Dates: start: 20210618, end: 20210618
  7. PFIZER-BIONTECH COVID-19 VACCINE [Concomitant]
     Active Substance: TOZINAMERAN
     Route: 030
     Dates: start: 202105, end: 202105
  8. PFIZER-BIONTECH COVID-19 VACCINE [Concomitant]
     Active Substance: TOZINAMERAN
     Route: 030
     Dates: start: 20211201, end: 20211201
  9. METHYLPREDNISOLONE [Concomitant]
     Active Substance: METHYLPREDNISOLONE
  10. PREGABALIN [Concomitant]
     Active Substance: PREGABALIN
     Indication: Multiple sclerosis
     Route: 048
     Dates: start: 20220509, end: 202206
  11. CIMETIDINE [Concomitant]
     Active Substance: CIMETIDINE
     Route: 042
     Dates: start: 20221117
  12. CIMETIDINE [Concomitant]
     Active Substance: CIMETIDINE
     Route: 042
     Dates: start: 20220504, end: 20220518
  13. PFIZER-BIONTECH COVID-19 VACCINE [Concomitant]
     Active Substance: TOZINAMERAN
     Indication: COVID-19 immunisation
     Route: 030
     Dates: start: 20211201, end: 20211201
  14. PFIZER-BIONTECH COVID-19 VACCINE [Concomitant]
     Active Substance: TOZINAMERAN
     Route: 030
     Dates: start: 202105, end: 202105
  15. PFIZER-BIONTECH COVID-19 VACCINE [Concomitant]
     Active Substance: TOZINAMERAN
     Route: 030
     Dates: start: 20210618, end: 20210618
  16. DESLORATADINE [Concomitant]
     Active Substance: DESLORATADINE
     Indication: Seasonal allergy
     Route: 048
     Dates: start: 202404

REACTIONS (11)
  - C-reactive protein increased [Unknown]
  - COVID-19 [Recovered/Resolved]
  - Eye inflammation [Recovered/Resolved]
  - Urinary tract infection [Recovered/Resolved]
  - White blood cells urine positive [Recovered/Resolved]
  - Urinary tract infection [Recovered/Resolved]
  - C-reactive protein increased [Recovered/Resolved]
  - C-reactive protein increased [Recovered/Resolved]
  - Urinary tract infection [Recovered/Resolved]
  - Arthritis [Unknown]
  - Neutrophil count decreased [Recovered/Resolved]

NARRATIVE: CASE EVENT DATE: 20220106
